FAERS Safety Report 7462307-3 (Version None)
Quarter: 2011Q2

REPORT INFORMATION
  Report Type: 
  Country: None (occurrence: None)
  Receive Date: 20110506
  Receipt Date: 20110504
  Transmission Date: 20111010
  Serious: Yes (Hospitalization)
  Sender: FDA-Public Use
  Company Number: AU-ABBOTT-11P-008-0723514-00

PATIENT
  Sex: Male

DRUGS (2)
  1. FLUVAX [Suspect]
     Indication: PRODUCT USED FOR UNKNOWN INDICATION
     Dosage: 1 DOSE UNSPEC 1 TIME
     Dates: start: 20100318, end: 20100318
  2. LEUPROLIDE ACETATE [Suspect]
     Indication: PRODUCT USED FOR UNKNOWN INDICATION
     Dates: start: 20100318, end: 20100318

REACTIONS (3)
  - SENSORY DISTURBANCE [None]
  - GUILLAIN-BARRE SYNDROME [None]
  - ASTHENIA [None]
